FAERS Safety Report 8088821-8 (Version None)
Quarter: 2012Q1

REPORT INFORMATION
  Report Type: 
  Country: None (occurrence: None)
  Receive Date: 20120128
  Receipt Date: 20110405
  Transmission Date: 20120608
  Serious: No
  Sender: FDA-Public Use
  Company Number: US-ABBOTT-11P-163-0717009-00

PATIENT
  Sex: Female
  Weight: 54.48 kg

DRUGS (2)
  1. UNKNOWN ORAL CONTRACEPTIVE PILLS [Concomitant]
     Indication: CONTRACEPTION
  2. HUMIRA [Suspect]
     Indication: PSORIASIS
     Dates: start: 20110201

REACTIONS (2)
  - PSORIASIS [None]
  - ORAL HERPES [None]
